FAERS Safety Report 4445299-0 (Version None)
Quarter: 2004Q3

REPORT INFORMATION
  Report Type: 
  Country: None (occurrence: None)
  Receive Date: 20040730
  Receipt Date: 20040716
  Transmission Date: 20050211
  Serious: No
  Sender: FDA-Public Use
  Company Number: PHEH2004US07695

PATIENT
  Age: 78 Year
  Sex: Male

DRUGS (1)
  1. GLEEVEC [Suspect]
     Indication: CHRONIC MYELOID LEUKAEMIA
     Dosage: 400 MG,QID,ORAL
     Route: 048
     Dates: start: 20040101

REACTIONS (5)
  - ACCIDENTAL OVERDOSE [None]
  - DYSPEPSIA [None]
  - FATIGUE [None]
  - MUSCLE CRAMP [None]
  - RASH [None]
